FAERS Safety Report 7910891-5 (Version None)
Quarter: 2011Q4

REPORT INFORMATION
  Report Type: 
  Country: None (occurrence: None)
  Receive Date: 20111114
  Receipt Date: 20111103
  Transmission Date: 20120403
  Serious: No
  Sender: FDA-Public Use
  Company Number: US-BIOGENIDEC-2011BI015129

PATIENT
  Sex: Female

DRUGS (1)
  1. TYSABRI [Suspect]
     Indication: MULTIPLE SCLEROSIS
     Route: 042
     Dates: start: 20110406

REACTIONS (22)
  - VERTIGO [None]
  - DYSPNOEA [None]
  - CHEST DISCOMFORT [None]
  - APHASIA [None]
  - FATIGUE [None]
  - DEPRESSION [None]
  - STRESS [None]
  - ERYTHEMA [None]
  - FEELING HOT [None]
  - FALL [None]
  - ARTHRALGIA [None]
  - NAUSEA [None]
  - CHILLS [None]
  - VOMITING [None]
  - APATHY [None]
  - TREMOR [None]
  - PRURITUS [None]
  - PYREXIA [None]
  - HEAD INJURY [None]
  - CONTUSION [None]
  - SENSATION OF PRESSURE [None]
  - SYNCOPE [None]
